FAERS Safety Report 11802249 (Version 1)
Quarter: 2015Q4

REPORT INFORMATION
  Report Type: Spontaneous
  Country: NL (occurrence: NL)
  Receive Date: 20151204
  Receipt Date: 20151204
  Transmission Date: 20160305
  Serious: Yes (Other)
  Sender: FDA-Public Use
  Company Number: NL-TEVA-613046ISR

PATIENT
  Age: 57 Year
  Sex: Female
  Weight: 85 kg

DRUGS (1)
  1. OXALIPLATINE INFUUS [Suspect]
     Active Substance: OXALIPLATIN
     Indication: COLON CANCER
     Dosage: ONCE EVERY 3 WEEKS
     Route: 042
     Dates: start: 20151113

REACTIONS (1)
  - Transient ischaemic attack [Recovered/Resolved]

NARRATIVE: CASE EVENT DATE: 20151113
